FAERS Safety Report 4287083-7 (Version None)
Quarter: 2004Q1

REPORT INFORMATION
  Report Type: 
  Country: None (occurrence: None)
  Receive Date: 20040205
  Receipt Date: 20040126
  Transmission Date: 20041129
  Serious: Yes (Other)
  Sender: FDA-Public Use
  Company Number: QUIN-137

PATIENT
  Age: 66 Year
  Sex: Male
  Weight: 100.2449 kg

DRUGS (4)
  1. SOLARAZE [Suspect]
     Indication: DERMATITIS
     Dosage: 1 APPLICATION BID TP
     Route: 064
     Dates: start: 20030101, end: 20030311
  2. COUMADIN [Concomitant]
  3. DILTIAZEM [Concomitant]
  4. SIMVASTATIN [Concomitant]

REACTIONS (2)
  - HAEMATURIA [None]
  - INTERNATIONAL NORMALISED RATIO INCREASED [None]
